FAERS Safety Report 9292714 (Version 1)
Quarter: 2013Q2

REPORT INFORMATION
  Report Type: Spontaneous
  Country: US (occurrence: None)
  Receive Date: 20130515
  Receipt Date: 20130515
  Transmission Date: 20140414
  Serious: Yes (Other)
  Sender: FDA-Public Use
  Company Number: None

PATIENT
  Age: 64 Year
  Sex: Female
  Weight: 65.77 kg

DRUGS (2)
  1. LAMOTRIGINE [Suspect]
     Indication: MAJOR DEPRESSION
     Dates: start: 20130228, end: 20130322
  2. LAMOTRIGINE [Suspect]
     Indication: ADJUVANT THERAPY
     Dates: start: 20130228, end: 20130322

REACTIONS (8)
  - Headache [None]
  - Pyrexia [None]
  - Chills [None]
  - Myalgia [None]
  - Skin exfoliation [None]
  - Hyperaesthesia [None]
  - Rash pruritic [None]
  - Stomatitis [None]
